FAERS Safety Report 7422226-5 (Version None)
Quarter: 2011Q2

REPORT INFORMATION
  Report Type: 
  Country: None (occurrence: None)
  Receive Date: 20110418
  Receipt Date: 20110406
  Transmission Date: 20111010
  Serious: Yes (Disabling)
  Sender: FDA-Public Use
  Company Number: GB-BAYER-2011-032345

PATIENT
  Age: 24 Year
  Sex: Male
  Weight: 72 kg

DRUGS (4)
  1. CIPROXIN 500 MG FILM-COATED TABLETS [Suspect]
     Indication: PROSTATITIS
     Dosage: 500 MG, BID
     Route: 048
     Dates: start: 20110222, end: 20110227
  2. OMEPRAZOLE [Concomitant]
     Indication: DYSPEPSIA
     Dosage: 20 MG, QD
     Route: 048
     Dates: start: 20110222, end: 20110201
  3. ASPIRIN [Concomitant]
     Indication: ATRIAL FIBRILLATION
     Dosage: 750 MG, QD
     Route: 048
     Dates: start: 20110125
  4. DOXYCYCLINE [Concomitant]
     Indication: PROSTATITIS
     Dosage: 100 MG, BID
     Route: 048
     Dates: start: 20110217, end: 20110221

REACTIONS (4)
  - TREMOR [None]
  - MUSCULAR WEAKNESS [None]
  - PAIN IN EXTREMITY [None]
  - HYPERTONIA [None]
